FAERS Safety Report 10642503 (Version 2)
Quarter: 2015Q2

REPORT INFORMATION
  Report Type: Spontaneous
  Country: US (occurrence: None)
  Receive Date: 20141208
  Receipt Date: 20150511
  Transmission Date: 20150821
  Serious: Yes (Life-Threatening, Disabling)
  Sender: FDA-Public Use
  Company Number: US2014GSK031072

PATIENT
  Age: 59 Year
  Sex: Male

DRUGS (10)
  1. TIVICAY [Suspect]
     Active Substance: DOLUTEGRAVIR SODIUM
     Indication: MICROALBUMINURIA
     Dosage: 1 DF, QD, ORAL
     Route: 048
     Dates: start: 20140811, end: 20141008
  2. TIVICAY [Suspect]
     Active Substance: DOLUTEGRAVIR SODIUM
     Indication: HIV INFECTION
     Dosage: 1 DF, QD, ORAL
     Route: 048
     Dates: start: 20140811, end: 20141008
  3. TIVICAY [Suspect]
     Active Substance: DOLUTEGRAVIR SODIUM
     Indication: LIPIDS
     Dosage: 1 DF, QD, ORAL
     Route: 048
     Dates: start: 20140811, end: 20141008
  4. PRAVASTATIN [Concomitant]
     Active Substance: PRAVASTATIN\PRAVASTATIN SODIUM
  5. EPZICOM [Suspect]
     Active Substance: ABACAVIR SULFATE\LAMIVUDINE
     Indication: MICROALBUMINURIA
     Dosage: 1 DF, 1D, ORAL
     Route: 048
     Dates: start: 20140814, end: 20141112
  6. ACYCLOVIR. [Concomitant]
     Active Substance: ACYCLOVIR
  7. EPZICOM [Suspect]
     Active Substance: ABACAVIR SULFATE\LAMIVUDINE
     Indication: HIV INFECTION
     Dosage: 1 DF, 1D, ORAL
     Route: 048
     Dates: start: 20140814, end: 20141112
  8. DULOXETINE [Concomitant]
     Active Substance: DULOXETINE
  9. EPZICOM [Suspect]
     Active Substance: ABACAVIR SULFATE\LAMIVUDINE
     Indication: LIPIDS
     Dosage: 1 DF, 1D, ORAL
     Route: 048
     Dates: start: 20140814, end: 20141112
  10. AMLODIPINE + BENAZEPRIL [Concomitant]
     Active Substance: AMLODIPINE BESYLATE\BENAZEPRIL HYDROCHLORIDE

REACTIONS (6)
  - Chills [None]
  - Pyrexia [None]
  - Pain [None]
  - Diarrhoea [None]
  - Heart rate increased [None]
  - Dyspnoea [None]

NARRATIVE: CASE EVENT DATE: 20140901
